FAERS Safety Report 6189512-0 (Version None)
Quarter: 2009Q2

REPORT INFORMATION
  Report Type: 
  Country: None (occurrence: None)
  Receive Date: 20090512
  Receipt Date: 20090512
  Transmission Date: 20091009
  Serious: Yes (Life-Threatening, Disabling, Other)
  Sender: FDA-Public Use
  Company Number: None

PATIENT
  Age: 32 Year
  Sex: Female
  Weight: 54.4316 kg

DRUGS (1)
  1. PROZAC [Suspect]
     Indication: ANXIETY
     Dosage: 20MG  ONCE DAILY PO
     Route: 047
     Dates: start: 20081120, end: 20090510

REACTIONS (5)
  - AGGRESSION [None]
  - FEELING ABNORMAL [None]
  - PARTNER STRESS [None]
  - PERSONALITY DISORDER [None]
  - SEXUAL ACTIVITY INCREASED [None]
